FAERS Safety Report 13366661 (Version 1)
Quarter: 2017Q1

REPORT INFORMATION
  Report Type: Other
  Country: GB (occurrence: KR)
  Receive Date: 20170323
  Receipt Date: 20170323
  Transmission Date: 20170429
  Serious: Yes (Life-Threatening, Hospitalization, Other)
  Sender: FDA-Public Use
  Company Number: KR-INTERNATIONAL MEDICATION SYSTEMS, LIMITED-1064599

PATIENT
  Age: 25 Year
  Sex: Female
  Weight: 40 kg

DRUGS (12)
  1. ETHAMBUTOL [Suspect]
     Active Substance: ETHAMBUTOL HYDROCHLORIDE
  2. ARBEKACIN [Suspect]
     Active Substance: ARBEKACIN
  3. IMMUNE GLOBULIN NOS [Concomitant]
     Active Substance: IMMUNE GLOBULIN NOS
     Route: 042
  4. ETHIONAMIDE [Concomitant]
     Active Substance: ETHIONAMIDE
  5. CYCLOSERINE. [Suspect]
     Active Substance: CYCLOSERINE
  6. PREDNISOLONE. [Concomitant]
     Active Substance: PREDNISOLONE
  7. MOXIFLOXACIN. [Suspect]
     Active Substance: MOXIFLOXACIN
  8. MORPHINE [Suspect]
     Active Substance: MORPHINE
  9. ISONIAZID. [Suspect]
     Active Substance: ISONIAZID
  10. PYRAZINAMIDE. [Suspect]
     Active Substance: PYRAZINAMIDE
  11. STREPTOMYCIN [Concomitant]
     Active Substance: STREPTOMYCIN\STREPTOMYCIN SULFATE
  12. PARA-AMINOSALICYLIC ACID [Concomitant]
     Active Substance: AMINOSALICYLIC ACID

REACTIONS (4)
  - Condition aggravated [Unknown]
  - Drug reaction with eosinophilia and systemic symptoms [Unknown]
  - Drug hypersensitivity [Unknown]
  - Acute generalised exanthematous pustulosis [Unknown]
